FAERS Safety Report 4596479-5 (Version None)
Quarter: 2005Q1

REPORT INFORMATION
  Report Type: 
  Country: None (occurrence: None)
  Receive Date: 20050302
  Receipt Date: 20040209
  Transmission Date: 20050727
  Serious: Yes (Hospitalization)
  Sender: FDA-Public Use
  Company Number: US-SANOFI-SYNTHELABO-A03200500414

PATIENT
  Age: 79 Year
  Sex: Male

DRUGS (11)
  1. PLAVIX [Suspect]
     Indication: MYOCARDIAL INFARCTION
     Route: 048
     Dates: start: 20040301
  2. PLAVIX [Suspect]
     Indication: ANGIOPLASTY
     Route: 048
     Dates: start: 20040301
  3. PLAVIX [Suspect]
     Indication: STENT PLACEMENT
     Route: 048
     Dates: start: 20040301
  4. ALTACE [Concomitant]
     Dosage: UNK
     Route: 048
     Dates: start: 20040301
  5. METOPROLOL [Concomitant]
     Route: 048
     Dates: start: 20040301
  6. ZOCOR [Concomitant]
     Route: 048
  7. TYLENOL [Concomitant]
     Dosage: UNK
     Route: 065
  8. XALANTAN [Concomitant]
     Dosage: UNK
     Route: 047
  9. TIMOPTIC-XE [Concomitant]
     Dosage: UNK
     Route: 047
  10. GLUCOSAMINE CHONDROITIN [Concomitant]
     Dosage: UNK
     Route: 065
  11. ASPIRIN [Suspect]
     Indication: ISCHAEMIC HEART DISEASE PROPHYLAXIS
     Route: 048

REACTIONS (3)
  - ANAEMIA [None]
  - GASTRITIS [None]
  - OESOPHAGITIS [None]
